FAERS Safety Report 15848296 (Version 5)
Quarter: 2019Q3

REPORT INFORMATION
  Report Type: Spontaneous
  Country: US (occurrence: US)
  Receive Date: 20190121
  Receipt Date: 20190807
  Transmission Date: 20191004
  Serious: No
  Sender: FDA-Public Use
  Company Number: US-PFIZER INC-2019026314

PATIENT
  Age: 29 Year
  Sex: Female

DRUGS (1)
  1. XELJANZ XR [Suspect]
     Active Substance: TOFACITINIB CITRATE
     Dosage: 11 MG
     Dates: start: 201811

REACTIONS (9)
  - Peripheral swelling [Not Recovered/Not Resolved]
  - Drug ineffective [Unknown]
  - Gait disturbance [Unknown]
  - Nasopharyngitis [Unknown]
  - Sputum increased [Recovering/Resolving]
  - Product residue present [Unknown]
  - Joint swelling [Unknown]
  - Acne [Not Recovered/Not Resolved]
  - Joint effusion [Unknown]
